FAERS Safety Report 7725767-6 (Version None)
Quarter: 2011Q3

REPORT INFORMATION
  Report Type: 
  Country: None (occurrence: None)
  Receive Date: 20110902
  Receipt Date: 20110823
  Transmission Date: 20111222
  Serious: Yes (Hospitalization)
  Sender: FDA-Public Use
  Company Number: US-SANOFI-AVENTIS-2011SA055967

PATIENT
  Age: 55 Year
  Sex: Male

DRUGS (5)
  1. BENDAMUSTINE [Concomitant]
  2. SODIUM CHLORIDE [Concomitant]
     Indication: PROPHYLAXIS
  3. RASBURICASE [Suspect]
     Route: 065
  4. RITUXIMAB [Concomitant]
  5. ALLOPURINOL [Concomitant]
     Indication: PROPHYLAXIS

REACTIONS (7)
  - PULMONARY HYPERTENSION [None]
  - HAEMOLYTIC ANAEMIA [None]
  - BLOOD LACTATE DEHYDROGENASE INCREASED [None]
  - INTRAVASCULAR HAEMOLYSIS [None]
  - TRICUSPID VALVE INCOMPETENCE [None]
  - METHAEMOGLOBINAEMIA [None]
  - HYPOXIA [None]
